FAERS Safety Report 8367523-4 (Version None)
Quarter: 2012Q2

REPORT INFORMATION
  Report Type: 
  Country: None (occurrence: None)
  Receive Date: 20120517
  Receipt Date: 20120510
  Transmission Date: 20120825
  Serious: Yes (Hospitalization)
  Sender: FDA-Public Use
  Company Number: US-BAYER-2012-036777

PATIENT
  Age: 20 Year
  Sex: Female
  Weight: 92.063 kg

DRUGS (2)
  1. YAZ [Suspect]
     Indication: ACNE
     Dosage: UNK
     Route: 048
     Dates: start: 20111001, end: 20120411
  2. YAZ [Suspect]
     Indication: MENORRHAGIA

REACTIONS (3)
  - PULMONARY THROMBOSIS [None]
  - CHEST PAIN [None]
  - DYSPNOEA [None]
